FAERS Safety Report 8275789-4 (Version None)
Quarter: 2012Q2

REPORT INFORMATION
  Report Type: 
  Country: None (occurrence: None)
  Receive Date: 20120410
  Receipt Date: 20120410
  Transmission Date: 20120825
  Serious: Yes (Hospitalization, Other)
  Sender: FDA-Public Use
  Company Number: None

PATIENT
  Age: 68 Year
  Sex: Male
  Weight: 157.3 kg

DRUGS (4)
  1. DIGOXIN [Suspect]
     Indication: CARDIAC FAILURE CONGESTIVE
     Dosage: 0.25 MG EVERY DAY PO
     Route: 048
     Dates: start: 20110821, end: 20110825
  2. DIGOXIN [Suspect]
     Indication: ATRIAL FIBRILLATION
     Dosage: 0.25 MG EVERY DAY PO
     Route: 048
     Dates: start: 20110821, end: 20110825
  3. DIGOXIN [Suspect]
     Indication: ATRIAL FIBRILLATION
     Dosage: 0.5 MG EVERY DAY IV
     Route: 042
     Dates: start: 20110820, end: 20110821
  4. DIGOXIN [Suspect]
     Indication: CARDIAC FAILURE CONGESTIVE
     Dosage: 0.5 MG EVERY DAY IV
     Route: 042
     Dates: start: 20110820, end: 20110821

REACTIONS (4)
  - ATRIAL FIBRILLATION [None]
  - BRADYCARDIA [None]
  - PALPITATIONS [None]
  - LABILE BLOOD PRESSURE [None]
